FAERS Safety Report 9889702 (Version 1)
Quarter: 2014Q1

REPORT INFORMATION
  Report Type: Spontaneous
  Country: DE (occurrence: DE)
  Receive Date: 20140211
  Receipt Date: 20140211
  Transmission Date: 20141002
  Serious: Yes (Other)
  Sender: FDA-Public Use
  Company Number: DE-PFIZER INC-2014036350

PATIENT
  Age: 29 Year
  Sex: Female

DRUGS (2)
  1. ZELDOX [Suspect]
     Dosage: 240 MG, DAILY, MORE THAN 3 YEARS
  2. ZELDOX [Suspect]
     Dosage: 40 MG, 2X/DAY

REACTIONS (5)
  - Drug prescribing error [Unknown]
  - Overdose [Unknown]
  - Hallucination [Unknown]
  - Paranoia [Unknown]
  - Anxiety [Unknown]
